FAERS Safety Report 15650168 (Version 2)
Quarter: 2019Q1

REPORT INFORMATION
  Report Type: Report from Study
  Country: US (occurrence: US)
  Receive Date: 20181123
  Receipt Date: 20190114
  Transmission Date: 20190417
  Serious: No
  Sender: FDA-Public Use
  Company Number: US-BAUSCH-BL-2018-032392

PATIENT
  Age: 88 Year
  Sex: Female
  Weight: 70.37 kg

DRUGS (6)
  1. LEVOTHYROXINE. [Concomitant]
     Active Substance: LEVOTHYROXINE
     Indication: THYROID DISORDER
  2. XIFAXAN [Suspect]
     Active Substance: RIFAXIMIN
     Indication: OFF LABEL USE
     Route: 065
     Dates: start: 20181218, end: 20181222
  3. XIFAXAN [Suspect]
     Active Substance: RIFAXIMIN
     Indication: DIVERTICULITIS
     Route: 065
     Dates: start: 20181114, end: 20181120
  4. CURCUMIN [Concomitant]
     Active Substance: CURCUMIN
     Indication: COLITIS
  5. ZINC CARNOSINE [Concomitant]
     Indication: COLITIS
  6. SOTALOL. [Concomitant]
     Active Substance: SOTALOL
     Indication: TACHYCARDIA

REACTIONS (2)
  - Drug effective for unapproved indication [Recovered/Resolved]
  - Off label use [Recovered/Resolved]

NARRATIVE: CASE EVENT DATE: 20181114
